FAERS Safety Report 18392742 (Version 2)
Quarter: 2020Q4

REPORT INFORMATION
  Report Type: Spontaneous
  Country: CA (occurrence: CA)
  Receive Date: 20201016
  Receipt Date: 20201202
  Transmission Date: 20210114
  Serious: Yes (Other)
  Sender: FDA-Public Use
  Company Number: CA-PFIZER INC-2020396492

PATIENT
  Age: 38 Year
  Sex: Male

DRUGS (1)
  1. INOTUZUMAB OZOGAMICIN [Suspect]
     Active Substance: INOTUZUMAB OZOGAMICIN
     Dosage: UNK
     Dates: start: 2019

REACTIONS (7)
  - Hepatic enzyme increased [Recovered/Resolved]
  - Blood bilirubin increased [Unknown]
  - Clostridium difficile colitis [Unknown]
  - Bone marrow failure [Unknown]
  - Mucosal inflammation [Unknown]
  - Graft versus host disease in skin [Recovered/Resolved]
  - Rash pruritic [Recovered/Resolved]

NARRATIVE: CASE EVENT DATE: 2019
